FAERS Safety Report 16821663 (Version 1)
Quarter: 2019Q3

REPORT INFORMATION
  Report Type: Spontaneous
  Country: JP (occurrence: JP)
  Receive Date: 20190918
  Receipt Date: 20190918
  Transmission Date: 20191005
  Serious: Yes (Death, Other)
  Sender: FDA-Public Use
  Company Number: JP-ASTELLAS-2019JP018283

PATIENT
  Age: 82 Year
  Sex: Male
  Weight: 49 kg

DRUGS (2)
  1. PRODIF [Suspect]
     Active Substance: FOSFLUCONAZOLE
     Indication: BRONCHOPULMONARY ASPERGILLOSIS
     Dosage: 400 (8%), ONCE OR TWICE DAILY
     Route: 041
     Dates: start: 20190807, end: 20190816
  2. FUNGUARD [Suspect]
     Active Substance: MICAFUNGIN SODIUM
     Indication: BRONCHOPULMONARY ASPERGILLOSIS
     Route: 041
     Dates: start: 20190717, end: 20190722

REACTIONS (2)
  - Drug eruption [Unknown]
  - Respiratory failure [Fatal]

NARRATIVE: CASE EVENT DATE: 20190813
